FAERS Safety Report 7961442-0 (Version None)
Quarter: 2011Q4

REPORT INFORMATION
  Report Type: 
  Country: None (occurrence: None)
  Receive Date: 20111207
  Receipt Date: 20111128
  Transmission Date: 20120403
  Serious: Yes (Other)
  Sender: FDA-Public Use
  Company Number: FR-SANOFI-AVENTIS-2011SA060467

PATIENT
  Age: 29 Year
  Sex: Female

DRUGS (6)
  1. QUINIMAX [Concomitant]
     Route: 048
     Dates: start: 20110617, end: 20110617
  2. ARANESP [Concomitant]
     Route: 065
     Dates: start: 20110601
  3. ARTESUNATE [Suspect]
     Route: 042
     Dates: start: 20110618, end: 20110624
  4. CLAFORAN [Suspect]
     Indication: INFECTION
     Route: 042
     Dates: start: 20110618, end: 20110623
  5. FLAGYL [Suspect]
     Indication: INFECTION
     Route: 042
     Dates: start: 20110618, end: 20110623
  6. ARTESUNATE [Concomitant]
     Route: 065
     Dates: start: 20110618, end: 20110624

REACTIONS (1)
  - VISUAL ACUITY REDUCED [None]
